FAERS Safety Report 5369350-9 (Version None)
Quarter: 2007Q2

REPORT INFORMATION
  Report Type: 
  Country: None (occurrence: None)
  Receive Date: 20070625
  Receipt Date: 20070322
  Transmission Date: 20071010
  Serious: No
  Sender: FDA-Public Use
  Company Number: US-ASTRAZENECA-2007UW05689

PATIENT
  Age: 69 Year
  Sex: Female
  Weight: 127 kg

DRUGS (7)
  1. CRESTOR [Suspect]
     Indication: DYSLIPIDAEMIA
     Route: 048
     Dates: start: 20060901
  2. DEPAKOTE [Concomitant]
  3. PRIMIDONE [Concomitant]
  4. NEURONTIN [Concomitant]
  5. ECASA 81 [Concomitant]
  6. CENTRUM SILVER [Concomitant]
  7. GLUCOSAMINE-CHONDROITIN [Concomitant]

REACTIONS (1)
  - DRUG LEVEL BELOW THERAPEUTIC [None]
